FAERS Safety Report 12566106 (Version 3)
Quarter: 2016Q3

REPORT INFORMATION
  Report Type: Spontaneous
  Country: US (occurrence: US)
  Receive Date: 20160718
  Receipt Date: 20160928
  Transmission Date: 20161109
  Serious: No
  Sender: FDA-Public Use
  Company Number: US-GLAXOSMITHKLINE-US2016099009

PATIENT
  Sex: Male

DRUGS (2)
  1. TANZEUM [Suspect]
     Active Substance: ALBIGLUTIDE
     Indication: PRODUCT USED FOR UNKNOWN INDICATION
     Dosage: UNK
  2. TANZEUM [Suspect]
     Active Substance: ALBIGLUTIDE
     Dosage: UNK UNK, U

REACTIONS (4)
  - Device use error [Unknown]
  - Treatment noncompliance [Unknown]
  - Drug dose omission [Unknown]
  - Incorrect product storage [Unknown]
